FAERS Safety Report 21048098 (Version 2)
Quarter: 2022Q3

REPORT INFORMATION
  Report Type: Spontaneous
  Country: US (occurrence: None)
  Receive Date: 20220706
  Receipt Date: 20220723
  Transmission Date: 20221027
  Serious: No
  Sender: FDA-Public Use
  Company Number: 2022A211621

PATIENT
  Age: 73 Year
  Sex: Female
  Weight: 68 kg

DRUGS (3)
  1. FASENRA [Suspect]
     Active Substance: BENRALIZUMAB
     Indication: Eosinophil count increased
     Dosage: EVERY THREE MONTHS
     Route: 058
     Dates: start: 202203
  2. BUDESONIDE\FORMOTEROL\GLYCOPYRRONIUM [Suspect]
     Active Substance: BUDESONIDE\FORMOTEROL\GLYCOPYRRONIUM
     Dosage: 160/9/4.8 MCG. TWO PUFFS TWICE A DAY
     Route: 055
     Dates: start: 202201
  3. BUDESONIDE\FORMOTEROL\GLYCOPYRRONIUM [Suspect]
     Active Substance: BUDESONIDE\FORMOTEROL\GLYCOPYRRONIUM
     Route: 055
     Dates: start: 2022

REACTIONS (7)
  - Laryngitis [Not Recovered/Not Resolved]
  - Dyspnoea [Recovering/Resolving]
  - Impaired work ability [Not Recovered/Not Resolved]
  - Illness [Not Recovered/Not Resolved]
  - Nodule [Recovered/Resolved]
  - Inappropriate affect [Not Recovered/Not Resolved]
  - Heart rate increased [Unknown]

NARRATIVE: CASE EVENT DATE: 20220101
